FAERS Safety Report 7655783-4 (Version None)
Quarter: 2011Q3

REPORT INFORMATION
  Report Type: 
  Country: None (occurrence: None)
  Receive Date: 20110804
  Receipt Date: 20110728
  Transmission Date: 20111222
  Serious: Yes (Hospitalization)
  Sender: FDA-Public Use
  Company Number: GB-B.I. PHARMACEUTICALS,INC./RIDGEFIELD-2011-UK-00818UK

PATIENT
  Age: 67 Year
  Sex: Male

DRUGS (1)
  1. SPIRIVA RESPIMAT [Suspect]

REACTIONS (1)
  - CARDIAC FAILURE [None]
